FAERS Safety Report 4873288-0 (Version None)
Quarter: 2005Q4

REPORT INFORMATION
  Report Type: 
  Country: None (occurrence: None)
  Receive Date: 20051229
  Receipt Date: 20051219
  Transmission Date: 20060501
  Serious: No
  Sender: FDA-Public Use
  Company Number: CART-10348

PATIENT
  Age: 34 Year
  Sex: Male

DRUGS (1)
  1. CARTICEL [Suspect]
     Indication: ARTHROPATHY
     Dosage: 1 NA ONCE IS
     Route: 035
     Dates: start: 20000726, end: 20000726

REACTIONS (2)
  - GRAFT DELAMINATION [None]
  - LOOSE BODY IN JOINT [None]
